FAERS Safety Report 6224030-2 (Version None)
Quarter: 2009Q2

REPORT INFORMATION
  Report Type: 
  Country: None (occurrence: None)
  Receive Date: 20090612
  Receipt Date: 20090306
  Transmission Date: 20091009
  Serious: Yes (Other)
  Sender: FDA-Public Use
  Company Number: US-ABBOTT-09P-163-0561223-00

PATIENT
  Sex: Female
  Weight: 52.21 kg

DRUGS (2)
  1. HUMIRA [Suspect]
     Indication: CROHN'S DISEASE
     Route: 058
     Dates: start: 20080901, end: 20090305
  2. ADVAIR HFA [Concomitant]
     Indication: ASTHMA
     Dosage: UNKNOWN

REACTIONS (5)
  - CATARACT [None]
  - IMPAIRED HEALING [None]
  - MALIGNANT MELANOMA IN SITU [None]
  - MELANOCYTIC NAEVUS [None]
  - SQUAMOUS CELL CARCINOMA [None]
